FAERS Safety Report 7917026-3 (Version None)
Quarter: 2011Q4

REPORT INFORMATION
  Report Type: 
  Country: None (occurrence: None)
  Receive Date: 20111114
  Receipt Date: 20111104
  Transmission Date: 20120403
  Serious: Yes (Hospitalization)
  Sender: FDA-Public Use
  Company Number: WAES 1111USA00894

PATIENT
  Age: 73 Year
  Sex: Male

DRUGS (9)
  1. ASPIRIN [Concomitant]
  2. MICARDIS [Concomitant]
  3. JANUVIA [Suspect]
     Indication: DIABETES MELLITUS
     Dosage: 50 MG, DAILY, PO
     Route: 048
     Dates: start: 20100427
  4. AMARYL [Concomitant]
  5. CONIEL [Concomitant]
  6. LIPITOR [Concomitant]
  7. METFORMIN HCL [Concomitant]
  8. LANSOPRAZOLE [Concomitant]
  9. LENDORMIN [Concomitant]

REACTIONS (1)
  - CEREBRAL INFARCTION [None]
